FAERS Safety Report 23579455 (Version 1)
Quarter: 2024Q1

REPORT INFORMATION
  Report Type: Spontaneous
  Country: FR (occurrence: FR)
  Receive Date: 20240229
  Receipt Date: 20240229
  Transmission Date: 20240410
  Serious: Yes (Life-Threatening)
  Sender: FDA-Public Use
  Company Number: FR-AFSSAPS-AM2023000970

PATIENT
  Age: 50 Year
  Sex: Female
  Weight: 119 kg

DRUGS (6)
  1. ESOMEPRAZOLE [Suspect]
     Active Substance: ESOMEPRAZOLE
     Indication: Gastritis
     Dosage: 40 MILLIGRAM, DAILY
     Route: 048
     Dates: end: 20230627
  2. PREGABALIN [Suspect]
     Active Substance: PREGABALIN
     Indication: Pain
     Dosage: 250 MILLIGRAM, DAILY
     Route: 048
     Dates: end: 20230627
  3. PAROXETINE [Suspect]
     Active Substance: PAROXETINE
     Indication: Pain
     Dosage: 20 MILLIGRAM, DAILY
     Route: 048
     Dates: end: 20230627
  4. VENLAFAXINE [Suspect]
     Active Substance: VENLAFAXINE HYDROCHLORIDE
     Indication: Depression
     Dosage: 75 MILLIGRAM, DAILY
     Route: 048
     Dates: end: 20230627
  5. NATALIZUMAB [Suspect]
     Active Substance: NATALIZUMAB
     Indication: Multiple sclerosis
     Dosage: 300 MILLIGRAM, 1DOSE/4WEEKS
     Route: 058
     Dates: start: 20090713, end: 20230516
  6. VALPROMIDE [Suspect]
     Active Substance: VALPROMIDE
     Indication: Product used for unknown indication
     Dosage: 900 MILLIGRAM, DAILY
     Route: 048
     Dates: end: 20230627

REACTIONS (1)
  - Interstitial lung disease [Recovering/Resolving]

NARRATIVE: CASE EVENT DATE: 20230415
